FAERS Safety Report 4357059-X (Version None)
Quarter: 2004Q2

REPORT INFORMATION
  Report Type: 
  Country: None (occurrence: None)
  Receive Date: 20040507
  Receipt Date: 20040427
  Transmission Date: 20050107
  Serious: Yes (Hospitalization)
  Sender: FDA-Public Use
  Company Number: US-JNJFOC-20040405863

PATIENT
  Age: 53 Year
  Sex: Female

DRUGS (14)
  1. INFLIXIMAB (INFLIXIMAB, RECOMBINANT) (LYOPHILIZED POWDER) [Suspect]
     Indication: RHEUMATOID ARTHRITIS
     Dosage: INTRAVENOUS
     Route: 042
     Dates: start: 20030611
  2. FLEXERIL (CYCLOBENAZAPRINE HYDROCHLORIDE) [Concomitant]
  3. ZANTAC [Concomitant]
  4. PROZAC [Concomitant]
  5. NEURONTIN [Concomitant]
  6. LORTAB [Concomitant]
  7. SALAGEN [Concomitant]
  8. ULTRAM [Concomitant]
  9. BEXTRA [Concomitant]
  10. ELAVIL [Concomitant]
  11. PREDNISONE [Concomitant]
  12. FOLIC ACID [Concomitant]
  13. METHOTREXATE [Concomitant]
  14. PREMARIN [Concomitant]

REACTIONS (5)
  - BRONCHITIS CHRONIC [None]
  - INTERSTITIAL LUNG DISEASE [None]
  - OEDEMA PERIPHERAL [None]
  - PULMONARY FIBROSIS [None]
  - RESTRICTIVE PULMONARY DISEASE [None]
